FAERS Safety Report 9021990 (Version 1)
Quarter: 2013Q1

REPORT INFORMATION
  Report Type: Spontaneous
  Country: US (occurrence: US)
  Receive Date: 20130118
  Receipt Date: 20130118
  Transmission Date: 20140127
  Serious: Yes (Hospitalization, Disabling, Other)
  Sender: FDA-Public Use
  Company Number: US-009507513-0812USA02134

PATIENT
  Sex: 0

DRUGS (6)
  1. FOSAMAX [Suspect]
     Indication: OSTEOPOROSIS
     Dosage: 10 MG, QD
     Route: 048
     Dates: start: 200001, end: 20010724
  2. FOSAMAX [Suspect]
     Dosage: 70 MG, UNK
     Route: 048
     Dates: start: 20010724, end: 20080107
  3. FOSAMAX [Suspect]
     Dosage: 30 MG, QW
     Route: 048
  4. ARAVA [Concomitant]
     Indication: RHEUMATOID ARTHRITIS
     Dates: start: 200001
  5. METICORTEN [Concomitant]
     Indication: RHEUMATOID ARTHRITIS
     Dosage: 5 MG, QD
     Route: 048
     Dates: start: 200001
  6. AZMACORT [Concomitant]
     Indication: ASTHMA
     Dates: start: 1999, end: 20030828

REACTIONS (42)
  - Femur fracture [Unknown]
  - Open reduction of fracture [Unknown]
  - Knee arthroplasty [Unknown]
  - Knee arthroplasty [Unknown]
  - Bone graft [Unknown]
  - Patellectomy [Unknown]
  - Limb operation [Unknown]
  - Jaw operation [Unknown]
  - Jaw fracture [Unknown]
  - Jaw cyst [Unknown]
  - Pneumonia [Unknown]
  - Osteomyelitis [Unknown]
  - Osteonecrosis of jaw [Not Recovered/Not Resolved]
  - Osteomyelitis [Unknown]
  - Abscess [Unknown]
  - Oral infection [Unknown]
  - Trismus [Unknown]
  - Tooth fracture [Unknown]
  - Tooth loss [Unknown]
  - Adenoma benign [Unknown]
  - Drug administration error [Unknown]
  - Patella fracture [Unknown]
  - Osteoarthritis [Unknown]
  - Insomnia [Unknown]
  - Vision blurred [Unknown]
  - Dry eye [Unknown]
  - Visual impairment [Unknown]
  - Dyspnoea [Unknown]
  - Cough [Unknown]
  - Anxiety [Unknown]
  - Hypoaesthesia [Unknown]
  - Increased tendency to bruise [Unknown]
  - Overdose [Unknown]
  - Rheumatoid arthritis [Unknown]
  - Flank pain [Unknown]
  - Cyst removal [Unknown]
  - Tooth extraction [Unknown]
  - Adverse event [Unknown]
  - Wheezing [Unknown]
  - Muscle spasms [Unknown]
  - Joint swelling [Unknown]
  - Dizziness [Unknown]
